FAERS Safety Report 4362323-4 (Version None)
Quarter: 2004Q2

REPORT INFORMATION
  Report Type: 
  Country: None (occurrence: None)
  Receive Date: 20040520
  Receipt Date: 20040520
  Transmission Date: 20050107
  Serious: Yes (Hospitalization)
  Sender: FDA-Public Use
  Company Number: None

PATIENT
  Sex: Male
  Weight: 83.9154 kg

DRUGS (1)
  1. ATENOLOL [Suspect]
     Dosage: 25 MG PO QD
     Route: 048

REACTIONS (3)
  - BRADYCARDIA [None]
  - SINUS ARRHYTHMIA [None]
  - SYNCOPE [None]
